FAERS Safety Report 8243902-0 (Version None)
Quarter: 2012Q1

REPORT INFORMATION
  Report Type: 
  Country: None (occurrence: None)
  Receive Date: 20120329
  Receipt Date: 20110502
  Transmission Date: 20120608
  Serious: No
  Sender: FDA-Public Use
  Company Number: US-MYLANLABS-2011S1008992

PATIENT
  Age: 64 Year
  Sex: Female
  Weight: 71.22 kg

DRUGS (5)
  1. CRESTOR [Concomitant]
     Indication: BLOOD CHOLESTEROL
  2. ESTRADIOL [Suspect]
     Indication: HORMONE REPLACEMENT THERAPY
     Dosage: CHANGED QWEEK.
     Route: 062
     Dates: start: 20070101, end: 20110201
  3. LIPITOR [Concomitant]
     Indication: BLOOD CHOLESTEROL
  4. LOVASTATIN [Concomitant]
     Indication: BLOOD CHOLESTEROL
  5. DETROL LA [Concomitant]

REACTIONS (2)
  - HEMIPARESIS [None]
  - PAIN IN EXTREMITY [None]
